FAERS Safety Report 8090419 (Version 2)
Quarter: 2020Q4

REPORT INFORMATION
  Report Type: Spontaneous
  Country: AU (occurrence: AU)
  Receive Date: 20110815
  Receipt Date: 20201230
  Transmission Date: 20210114
  Serious: Yes (Hospitalization)
  Sender: FDA-Public Use
  Company Number: PHHY2011AU69148

PATIENT
  Age: 10 Year
  Sex: Male

DRUGS (12)
  1. DAPSONE. [Suspect]
     Active Substance: DAPSONE
     Indication: BORDERLINE LEPROSY
     Dosage: UNK
     Route: 065
  2. ETHAMBUTOL [Concomitant]
     Active Substance: ETHAMBUTOL HYDROCHLORIDE
     Indication: BORDERLINE LEPROSY
     Dosage: UNK
     Route: 065
  3. CLOFAZIMINE [Suspect]
     Active Substance: CLOFAZIMINE
     Indication: BORDERLINE LEPROSY
     Dosage: UNK
     Route: 065
  4. MOXIFLOXACIN. [Concomitant]
     Active Substance: MOXIFLOXACIN
     Indication: BORDERLINE LEPROSY
     Dosage: UNK
     Route: 048
  5. ISONIAZID. [Concomitant]
     Active Substance: ISONIAZID
     Indication: BORDERLINE LEPROSY
     Dosage: UNK
     Route: 065
  6. AMINOSALICYLIC ACID [Suspect]
     Active Substance: AMINOSALICYLIC ACID
     Indication: BORDERLINE LEPROSY
     Route: 065
  7. AMIKACIN. [Concomitant]
     Active Substance: AMIKACIN
     Indication: BORDERLINE LEPROSY
     Dosage: UNK
     Route: 042
  8. RIFAMPICIN [Suspect]
     Active Substance: RIFAMPIN
     Indication: BORDERLINE LEPROSY
     Dosage: UNK
     Route: 065
  9. PENICILLIN [Concomitant]
     Active Substance: PENICILLIN
     Indication: PROPHYLAXIS
     Dosage: UNK
     Route: 065
  10. PYRIDOXINE [Concomitant]
     Active Substance: PYRIDOXINE
     Indication: BORDERLINE LEPROSY
     Route: 065
  11. CYCLOSERINE. [Suspect]
     Active Substance: CYCLOSERINE
     Indication: BORDERLINE LEPROSY
     Route: 065
  12. PYRAZINAMIDE. [Concomitant]
     Active Substance: PYRAZINAMIDE
     Indication: BORDERLINE LEPROSY
     Dosage: UNK
     Route: 065

REACTIONS (9)
  - Ascites [Recovered/Resolved]
  - Pulmonary oedema [Recovered/Resolved]
  - Proteinuria [Recovered/Resolved]
  - Hypertension [Recovered/Resolved]
  - Renal impairment [Recovered/Resolved]
  - Type 2 lepra reaction [Recovering/Resolving]
  - Glomerulonephritis acute [Recovered/Resolved]
  - Oedema peripheral [Recovered/Resolved]
  - Haematuria [Recovered/Resolved]
